FAERS Safety Report 9881358 (Version 1)
Quarter: 2014Q1

REPORT INFORMATION
  Report Type: Spontaneous
  Country: US (occurrence: US)
  Receive Date: 20140207
  Receipt Date: 20140207
  Transmission Date: 20141002
  Serious: Yes (Other)
  Sender: FDA-Public Use
  Company Number: PHHY2014US013885

PATIENT
  Age: 26 Year
  Sex: Female

DRUGS (6)
  1. CICLOSPORIN [Suspect]
     Indication: HEART TRANSPLANT
     Dosage: 450 MG, PER DAY IN 4 DIVIDED DOSES
  2. PREDNISONE [Suspect]
     Indication: HEART TRANSPLANT
     Dosage: 10 MG, PER DAY
  3. OXYTOCIN [Suspect]
     Indication: LABOUR INDUCTION
  4. AZATHIOPRINE [Suspect]
     Indication: HEART TRANSPLANT
     Dosage: 100 MG, PER DAY
  5. FENTANYL [Suspect]
     Indication: EPIDURAL ANALGESIA
  6. MARCAINE [Suspect]
     Indication: EPIDURAL ANALGESIA

REACTIONS (6)
  - Gestational diabetes [Unknown]
  - Proteinuria [Unknown]
  - Gestational hypertension [Unknown]
  - Normal newborn [Unknown]
  - Exposure during pregnancy [Unknown]
  - Delivery [Unknown]
